FAERS Safety Report 8472092-4 (Version None)
Quarter: 2012Q2

REPORT INFORMATION
  Report Type: 
  Country: None (occurrence: None)
  Receive Date: 20120323
  Receipt Date: 20110831
  Transmission Date: 20120825
  Serious: Yes (Other)
  Sender: FDA-Public Use
  Company Number: 163-21880-11090177

PATIENT
  Age: 56 Year
  Sex: Male
  Weight: 111.1313 kg

DRUGS (14)
  1. HYDROCODONE BITARTRATE [Concomitant]
  2. NEXIUM [Concomitant]
  3. MINOXIDIL [Concomitant]
  4. LISINOPRIL [Concomitant]
  5. RESTORIL (TEMAZEPAM) (UNKNOWN) [Concomitant]
  6. REVLIMID [Suspect]
     Indication: MULTIPLE MYELOMA
     Dosage: 25 MG,1 IN 1 D, PO,  10 MG, 1 IN 1 D, PO
     Route: 048
     Dates: start: 20110524
  7. REVLIMID [Suspect]
     Indication: MULTIPLE MYELOMA
     Dosage: 25 MG,1 IN 1 D, PO,  10 MG, 1 IN 1 D, PO
     Route: 048
     Dates: start: 20090501
  8. FUROSEMIDE [Concomitant]
  9. PROCHLORPERAZINE (PROCHLORPERAZINE)(UNKNOWN) [Concomitant]
  10. FERROUS SULFATE TAB [Concomitant]
  11. CALCIUM (CALCIUM)(UNKNOWN) [Concomitant]
  12. DAILYVITE (DAILY-VITE)(UNKNOWN) [Concomitant]
  13. ALLOPURINOL [Concomitant]
  14. COLCRYS (COLCHICINE)(UNKNOWN) [Concomitant]

REACTIONS (2)
  - ANAEMIA [None]
  - BLOOD CREATININE INCREASED [None]
